FAERS Safety Report 25923712 (Version 3)
Quarter: 2025Q4

REPORT INFORMATION
  Report Type: Report from Study
  Country: US (occurrence: US)
  Receive Date: 20251015
  Receipt Date: 20251103
  Transmission Date: 20260117
  Serious: Yes (Other)
  Sender: AMGEN
  Company Number: US-AMGEN-USASP2025202754

PATIENT
  Age: 46 Year
  Sex: Female

DRUGS (2)
  1. TEPEZZA [Suspect]
     Active Substance: TEPROTUMUMAB-TRBW
     Indication: Toxic goitre
     Dosage: 640 MILLIGRAM, (FIRST INFUSION, 10 MG/KG )
     Route: 040
     Dates: start: 20251003
  2. TEPEZZA [Suspect]
     Active Substance: TEPROTUMUMAB-TRBW
     Dosage: 20 MILLIGRAM/KILOGRAM
     Route: 040
     Dates: start: 2025

REACTIONS (4)
  - Urticaria [Recovered/Resolved]
  - Muscle spasms [Unknown]
  - Tinnitus [Unknown]
  - Autophony [Unknown]

NARRATIVE: CASE EVENT DATE: 20251001
